FAERS Safety Report 12302245 (Version 4)
Quarter: 2016Q2

REPORT INFORMATION
  Report Type: Spontaneous
  Country: DK (occurrence: JP)
  Receive Date: 20160425
  Receipt Date: 20160607
  Transmission Date: 20160815
  Serious: Yes (Hospitalization)
  Sender: FDA-Public Use
  Company Number: JP-FRI-1000084103

PATIENT
  Age: 33 Year
  Sex: Female

DRUGS (3)
  1. CYANAMIDE [Suspect]
     Active Substance: CYANAMIDE
     Indication: ALCOHOLISM
     Route: 048
     Dates: start: 20160328, end: 20160405
  2. LEXAPRO [Suspect]
     Active Substance: ESCITALOPRAM OXALATE
     Route: 048
     Dates: start: 20160407, end: 20160408
  3. LEXAPRO [Suspect]
     Active Substance: ESCITALOPRAM OXALATE
     Indication: DEPRESSION
     Dosage: 15 MG
     Route: 048
     Dates: start: 20150114, end: 20160405

REACTIONS (1)
  - Drug reaction with eosinophilia and systemic symptoms [Recovering/Resolving]

NARRATIVE: CASE EVENT DATE: 20160403
